FAERS Safety Report 20412852 (Version 4)
Quarter: 2022Q3

REPORT INFORMATION
  Report Type: Report from Study
  Country: JP (occurrence: JP)
  Receive Date: 20220201
  Receipt Date: 20220719
  Transmission Date: 20221026
  Serious: Yes (Hospitalization)
  Sender: FDA-Public Use
  Company Number: JP-Eisai-202111200_BOLD-LF_C_1

PATIENT
  Age: 66 Year
  Sex: Male
  Weight: 47 kg

DRUGS (21)
  1. ERIBULIN [Suspect]
     Active Substance: ERIBULIN
     Indication: Lung neoplasm malignant
     Route: 041
     Dates: start: 20220119, end: 20220119
  2. ERIBULIN [Suspect]
     Active Substance: ERIBULIN
     Dosage: DOSE REDUCED (UNKNOWN)
     Route: 041
     Dates: start: 20220315, end: 20220315
  3. NIVOLUMAB [Suspect]
     Active Substance: NIVOLUMAB
     Indication: Lung neoplasm malignant
     Route: 041
     Dates: start: 20220119, end: 20220119
  4. NIVOLUMAB [Suspect]
     Active Substance: NIVOLUMAB
     Route: 041
     Dates: start: 20220315, end: 20220315
  5. PHENYTOIN SODIUM [Concomitant]
     Active Substance: PHENYTOIN SODIUM
     Indication: Post-traumatic epilepsy
     Route: 048
     Dates: start: 20220119, end: 20220208
  6. CALCIUM POLYSTYRENE SULFONATE [Concomitant]
     Active Substance: CALCIUM POLYSTYRENE SULFONATE
     Indication: Inappropriate antidiuretic hormone secretion
     Route: 048
     Dates: start: 20211127, end: 20220207
  7. CALONAL [Concomitant]
     Active Substance: ACETAMINOPHEN
     Indication: Cancer pain
     Route: 048
     Dates: start: 20210827
  8. SILODOSIN OD [Concomitant]
     Indication: Benign prostatic hyperplasia
     Route: 048
     Dates: start: 20210910
  9. DAYVIGO [Concomitant]
     Active Substance: LEMBOREXANT
     Indication: Insomnia
     Route: 048
     Dates: start: 20210831
  10. CALCIUM CARBONATE\CHOLECALCIFEROL\MAGNESIUM CARBONATE [Concomitant]
     Active Substance: CALCIUM CARBONATE\CHOLECALCIFEROL\MAGNESIUM CARBONATE
     Indication: Prophylaxis
     Route: 048
     Dates: start: 20210826
  11. NAPROXEN SODIUM [Concomitant]
     Active Substance: NAPROXEN SODIUM
     Indication: Cancer pain
     Route: 048
     Dates: start: 20210914
  12. MIRABEGRON [Concomitant]
     Active Substance: MIRABEGRON
     Indication: Benign prostatic hyperplasia
     Route: 048
     Dates: start: 20210916, end: 20220511
  13. METOCLOPRAMIDE [Concomitant]
     Active Substance: METOCLOPRAMIDE
     Indication: Prophylaxis
     Route: 048
     Dates: start: 20210907, end: 20220510
  14. MAGNESIUM OXIDE [Concomitant]
     Active Substance: MAGNESIUM OXIDE
     Indication: Constipation
     Route: 048
     Dates: start: 20210826
  15. OXYCODONE HYDROCHLORIDE [Concomitant]
     Active Substance: OXYCODONE HYDROCHLORIDE
     Indication: Cancer pain
     Route: 048
     Dates: start: 20220114, end: 2022
  16. OXYCODONE HYDROCHLORIDE [Concomitant]
     Active Substance: OXYCODONE HYDROCHLORIDE
     Route: 048
     Dates: start: 20220131
  17. OXINORM [Concomitant]
     Indication: Cancer pain
     Route: 048
     Dates: start: 20210907
  18. EKSALB [Concomitant]
     Indication: Skin erosion
     Route: 061
     Dates: start: 20220124, end: 20220308
  19. MYSER [Concomitant]
     Indication: Skin erosion
     Route: 061
     Dates: start: 20220124, end: 20220308
  20. UREA [Concomitant]
     Active Substance: UREA
     Indication: Dermatitis contact
     Route: 061
     Dates: start: 20220128, end: 20220223
  21. SENNOSIDES [Concomitant]
     Active Substance: SENNOSIDES
     Indication: Constipation
     Route: 048
     Dates: start: 20220125

REACTIONS (3)
  - Febrile neutropenia [Recovered/Resolved]
  - Pneumonitis [Recovering/Resolving]
  - Epilepsy [Recovered/Resolved]

NARRATIVE: CASE EVENT DATE: 20220124
